FAERS Safety Report 15503730 (Version 1)
Quarter: 2018Q4

REPORT INFORMATION
  Report Type: Spontaneous
  Country: US (occurrence: US)
  Receive Date: 20181016
  Receipt Date: 20181016
  Transmission Date: 20190205
  Serious: No
  Sender: FDA-Public Use
  Company Number: US-AMGEN INC.-USASP2018121681

PATIENT
  Sex: Female

DRUGS (3)
  1. INDOMETHACIN. [Concomitant]
     Active Substance: INDOMETHACIN
     Indication: HEADACHE
     Dosage: UNK (EXTENDED RELEASE)
  2. AIMOVIG [Suspect]
     Active Substance: ERENUMAB-AOOE
     Indication: MIGRAINE PROPHYLAXIS
     Dosage: 70 MG, QMO
     Route: 065
     Dates: start: 20180711
  3. MAGNESIUM [Concomitant]
     Active Substance: MAGNESIUM
     Dosage: UNK

REACTIONS (1)
  - Headache [Unknown]

NARRATIVE: CASE EVENT DATE: 201808
